FAERS Safety Report 12632478 (Version 2)
Quarter: 2016Q3

REPORT INFORMATION
  Report Type: Spontaneous
  Country: US (occurrence: US)
  Receive Date: 20160808
  Receipt Date: 20160808
  Transmission Date: 20161109
  Serious: No
  Sender: FDA-Public Use
  Company Number: US-BEH-2016063012

PATIENT
  Sex: Female
  Weight: 56 kg

DRUGS (13)
  1. DIPHENHYDRAMINE. [Concomitant]
     Active Substance: DIPHENHYDRAMINE
  2. L-M-X [Concomitant]
  3. PAROXETINE. [Concomitant]
     Active Substance: PAROXETINE
  4. ACETAMINOPHEN. [Concomitant]
     Active Substance: ACETAMINOPHEN
  5. LIDOCAINE/PRILOCAINE [Concomitant]
     Active Substance: LIDOCAINE\PRILOCAINE
  6. IMITREX [Concomitant]
     Active Substance: SUMATRIPTAN SUCCINATE
  7. HIZENTRA [Suspect]
     Active Substance: HUMAN IMMUNOGLOBULIN G
     Indication: IMMUNODEFICIENCY COMMON VARIABLE
     Route: 058
  8. EPIPEN [Concomitant]
     Active Substance: EPINEPHRINE
  9. SIMETHICONE (DIMETHICONE) [Concomitant]
     Active Substance: DIMETHICONE
  10. ALEVE [Concomitant]
     Active Substance: NAPROXEN SODIUM
  11. BEANO [Concomitant]
     Active Substance: ASPERGILLUS NIGER .ALPHA.-GALACTOSIDASE
  12. PROBIOTIC COLON SUPPORT [Concomitant]
  13. MULTIVITAMINS [Concomitant]
     Active Substance: VITAMINS

REACTIONS (2)
  - Infusion site pruritus [Unknown]
  - Infusion site erythema [Unknown]
